FAERS Safety Report 5336429-7 (Version None)
Quarter: 2007Q2

REPORT INFORMATION
  Report Type: 
  Country: None (occurrence: None)
  Receive Date: 20070523
  Receipt Date: 20070508
  Transmission Date: 20071010
  Serious: Yes (Death)
  Sender: FDA-Public Use
  Company Number: 070515-0000503

PATIENT
  Age: 14 Year
  Sex: Male

DRUGS (6)
  1. DESOXYN [Suspect]
     Indication: DRUG USE FOR UNKNOWN INDICATION
  2. PARAMETHOXYMETHAMPHETAMINE [Suspect]
     Indication: DRUG USE FOR UNKNOWN INDICATION
  3. 3,4-METHYLENEDIOXYMETHAMPHETAMINE [Suspect]
     Indication: DRUG USE FOR UNKNOWN INDICATION
  4. KETAMINE (KETAMINE) [Suspect]
     Indication: DRUG USE FOR UNKNOWN INDICATION
  5. NORKETAMINE [Suspect]
     Indication: DRUG USE FOR UNKNOWN INDICATION
  6. 3,4-METHYLENEDIOXYAMPHETAMINE [Suspect]
     Indication: DRUG USE FOR UNKNOWN INDICATION

REACTIONS (7)
  - ACCIDENTAL OVERDOSE [None]
  - BRAIN OEDEMA [None]
  - DRUG TOXICITY [None]
  - PERICARDIAL HAEMORRHAGE [None]
  - PULMONARY CONGESTION [None]
  - PULMONARY OEDEMA [None]
  - SPINAL DISORDER [None]
